FAERS Safety Report 15484199 (Version 2)
Quarter: 2018Q4

REPORT INFORMATION
  Report Type: Spontaneous
  Country: AU (occurrence: US)
  Receive Date: 20181010
  Receipt Date: 20181012
  Transmission Date: 20190205
  Serious: Yes (Other)
  Sender: FDA-Public Use
  Company Number: AU-ABBVIE-18K-008-2514337-00

PATIENT
  Sex: Female

DRUGS (1)
  1. HUMIRA [Suspect]
     Active Substance: ADALIMUMAB
     Indication: PSORIATIC ARTHROPATHY
     Route: 058
     Dates: start: 2012

REACTIONS (13)
  - Rib fracture [Unknown]
  - General physical health deterioration [Unknown]
  - Impaired healing [Unknown]
  - Breast cancer female [Unknown]
  - Impaired work ability [Unknown]
  - Injury [Unknown]
  - Drug ineffective [Unknown]
  - Mental disorder [Unknown]
  - Fall [Unknown]
  - Lower limb fracture [Unknown]
  - Emotional distress [Unknown]
  - Juvenile melanoma benign [Unknown]
  - Impaired quality of life [Unknown]
